FAERS Safety Report 7980074-1 (Version None)
Quarter: 2011Q4

REPORT INFORMATION
  Report Type: 
  Country: None (occurrence: None)
  Receive Date: 20111214
  Receipt Date: 20111208
  Transmission Date: 20120403
  Serious: Yes (Other)
  Sender: FDA-Public Use
  Company Number: US-ROCHE-793807

PATIENT
  Sex: Female
  Weight: 59.02 kg

DRUGS (2)
  1. ACCUTANE [Suspect]
     Indication: ACNE
     Route: 048
     Dates: start: 20020402, end: 20020809
  2. ACCUTANE [Suspect]
     Route: 048
     Dates: start: 19870101, end: 19880101

REACTIONS (8)
  - CROHN'S DISEASE [None]
  - INFLAMMATORY BOWEL DISEASE [None]
  - IRRITABLE BOWEL SYNDROME [None]
  - BACK PAIN [None]
  - COLITIS ULCERATIVE [None]
  - BLOOD TRIGLYCERIDES INCREASED [None]
  - DEPRESSION [None]
  - BLOOD CHOLESTEROL INCREASED [None]
